FAERS Safety Report 7362996 (Version 10)
Quarter: 2014Q3

REPORT INFORMATION
  Report Type: Spontaneous
  Country: US (occurrence: US)
  Receive Date: 20100422
  Receipt Date: 20140827
  Transmission Date: 20150326
  Serious: Yes (Disabling, Other)
  Sender: FDA-Public Use
  Company Number: US-ASTRAZENECA-2010SE01349

PATIENT
  Age: 88 Year
  Sex: Female
  Weight: 65.8 kg

DRUGS (15)
  1. ZESTRIL [Suspect]
     Active Substance: LISINOPRIL
     Dosage: GENERIC
     Route: 048
  2. MULTIVITAMIN [Concomitant]
     Active Substance: VITAMINS
     Dosage: DAILY
     Route: 048
     Dates: start: 2008
  3. LANOXIN [Concomitant]
     Active Substance: DIGOXIN
     Indication: HEART RATE INCREASED
     Dosage: 0.125 DAILY
     Route: 048
     Dates: start: 2004
  4. PROSTATIN [Suspect]
     Active Substance: ARCTOSTAPHYLOS UVA-URSI LEAF\URTICA DIOICA
     Route: 065
  5. ASCRIPTION [Concomitant]
     Indication: CARDIAC DISORDER
     Route: 048
     Dates: start: 1994
  6. TOPROL XL [Suspect]
     Active Substance: METOPROLOL SUCCINATE
     Indication: HYPERTENSION
     Route: 048
     Dates: start: 2004
  7. ZESTRIL [Suspect]
     Active Substance: LISINOPRIL
     Route: 048
  8. TOPROL XL [Suspect]
     Active Substance: METOPROLOL SUCCINATE
     Indication: ATRIAL FIBRILLATION
     Route: 048
     Dates: start: 2004
  9. PRAVASTATIN [Suspect]
     Active Substance: PRAVASTATIN\PRAVASTATIN SODIUM
     Route: 065
  10. ASCRITPION [Concomitant]
  11. VITAMIN C [Concomitant]
     Active Substance: ASCORBIC ACID
     Dosage: DAILY
     Route: 048
     Dates: start: 2009
  12. CRESTOR [Suspect]
     Active Substance: ROSUVASTATIN CALCIUM
     Route: 048
  13. BLOOD PRESSURE MEDICATION [Suspect]
     Active Substance: UNSPECIFIED INGREDIENT
  14. LEVACOR [Concomitant]
  15. ASPIRIN. [Concomitant]
     Active Substance: ASPIRIN

REACTIONS (27)
  - Atrial fibrillation [Unknown]
  - Escherichia infection [Unknown]
  - Loss of consciousness [Unknown]
  - Cough [Unknown]
  - Blood cholesterol increased [Unknown]
  - Oropharyngeal pain [Unknown]
  - Dyspnoea [Unknown]
  - Body height decreased [Unknown]
  - Cataract [Unknown]
  - Rhinorrhoea [Unknown]
  - Malaise [Unknown]
  - Nightmare [Unknown]
  - Hypoacusis [Unknown]
  - Hypertension [Unknown]
  - Intentional product misuse [Unknown]
  - Hypotension [Unknown]
  - Adverse event [Unknown]
  - Burning sensation [Unknown]
  - Dysphagia [Unknown]
  - Nasopharyngitis [Unknown]
  - Adverse drug reaction [Unknown]
  - Fatigue [Unknown]
  - Heart rate increased [Unknown]
  - Nocturia [Unknown]
  - Small cell lung cancer extensive stage [Unknown]
  - Dysphonia [Unknown]
  - Drug ineffective [Unknown]

NARRATIVE: CASE EVENT DATE: 2004
